FAERS Safety Report 26027592 (Version 1)
Quarter: 2025Q4

REPORT INFORMATION
  Report Type: Spontaneous
  Country: EU (occurrence: EU)
  Receive Date: 20251111
  Receipt Date: 20251111
  Transmission Date: 20260117
  Serious: Yes (Hospitalization, Other)
  Sender: ABBVIE
  Company Number: EU-ABBVIE-6536217

PATIENT
  Age: 38 Year
  Sex: Female

DRUGS (3)
  1. VENETOCLAX [Suspect]
     Active Substance: VENETOCLAX
     Indication: Acute myeloid leukaemia
     Route: 048
     Dates: start: 20250823, end: 20250905
  2. AZACITIDINE [Concomitant]
     Active Substance: AZACITIDINE
     Indication: Acute myeloid leukaemia
  3. LEVOTHYROXINE SODIUM [Concomitant]
     Active Substance: LEVOTHYROXINE SODIUM
     Indication: Product used for unknown indication
     Dosage: 75 MICROGRAM

REACTIONS (9)
  - Pallor [Recovering/Resolving]
  - Haemoglobin decreased [Recovering/Resolving]
  - C-reactive protein increased [Unknown]
  - Tachycardia [Recovering/Resolving]
  - White blood cell count decreased [Recovering/Resolving]
  - Allogenic stem cell transplantation [Unknown]
  - Platelet count decreased [Not Recovered/Not Resolved]
  - Body temperature increased [Recovering/Resolving]
  - Neutrophil count decreased [Recovering/Resolving]

NARRATIVE: CASE EVENT DATE: 20250101
